FAERS Safety Report 24338412 (Version 1)
Quarter: 2024Q3

REPORT INFORMATION
  Report Type: Spontaneous
  Country: BE (occurrence: BE)
  Receive Date: 20240919
  Receipt Date: 20240919
  Transmission Date: 20241017
  Serious: Yes (Other)
  Sender: CELLTRION
  Company Number: BE-SANDOZ-SDZ2024BE027645

PATIENT

DRUGS (10)
  1. RITUXIMAB [Suspect]
     Active Substance: RITUXIMAB
     Indication: Sjogren^s syndrome
     Dosage: UNK
     Route: 065
  2. RITUXIMAB [Suspect]
     Active Substance: RITUXIMAB
     Indication: Castleman^s disease
  3. SILTUXIMAB [Suspect]
     Active Substance: SILTUXIMAB
     Indication: Diarrhoea
     Dosage: UNK
     Route: 065
  4. SILTUXIMAB [Suspect]
     Active Substance: SILTUXIMAB
     Indication: Thrombocytopenia
  5. SILTUXIMAB [Suspect]
     Active Substance: SILTUXIMAB
     Indication: Dry mouth
  6. SILTUXIMAB [Suspect]
     Active Substance: SILTUXIMAB
     Indication: Bicytopenia
  7. SILTUXIMAB [Suspect]
     Active Substance: SILTUXIMAB
     Indication: Oedema
  8. SILTUXIMAB [Suspect]
     Active Substance: SILTUXIMAB
     Indication: Anaemia
  9. SILTUXIMAB [Suspect]
     Active Substance: SILTUXIMAB
     Indication: Pyrexia
  10. SILTUXIMAB [Suspect]
     Active Substance: SILTUXIMAB
     Indication: Asthenia

REACTIONS (3)
  - Platelet count decreased [Unknown]
  - Autoimmune haemolytic anaemia [Unknown]
  - Product use in unapproved indication [Unknown]
